FAERS Safety Report 4588452-8 (Version None)
Quarter: 2005Q1

REPORT INFORMATION
  Report Type: 
  Country: None (occurrence: None)
  Receive Date: 20050216
  Receipt Date: 20050216
  Transmission Date: 20050727
  Serious: Yes (Hospitalization)
  Sender: FDA-Public Use
  Company Number: None

PATIENT
  Sex: Male
  Weight: 109.9 kg

DRUGS (2)
  1. AVASTIN [Suspect]
     Indication: NEOPLASM MALIGNANT
     Dosage: 10 MG/KG IV ON DAY
     Route: 042
     Dates: start: 20050110
  2. AVASTIN [Suspect]
     Indication: NEOPLASM MALIGNANT
     Dosage: 10 MG/KG IV ON DAY
     Route: 042
     Dates: start: 20050124

REACTIONS (2)
  - THROMBOSIS [None]
  - VASCULAR OCCLUSION [None]
